FAERS Safety Report 17946578 (Version 1)
Quarter: 2020Q2

REPORT INFORMATION
  Report Type: Spontaneous
  Country: NL (occurrence: NL)
  Receive Date: 20200626
  Receipt Date: 20200626
  Transmission Date: 20200714
  Serious: Yes (Other)
  Sender: FDA-Public Use
  Company Number: NL-ASTRAZENECA-2020SE79100

PATIENT
  Sex: Female

DRUGS (3)
  1. SEROQUEL [Suspect]
     Active Substance: QUETIAPINE FUMARATE
     Indication: INSOMNIA
     Dosage: AS SOON AS THE PATIENT GETS THESE SYMPTOMS THE PATIENT STARTS THE SEROQUEL TREATMENT AGAIN.
     Route: 048
  2. NOZINAN [Concomitant]
     Active Substance: LEVOMEPROMAZINE
  3. SEROQUEL [Suspect]
     Active Substance: QUETIAPINE FUMARATE
     Indication: INSOMNIA
     Dosage: UNKNOWN DOSE
     Route: 048

REACTIONS (9)
  - Drug ineffective [Unknown]
  - Drug dependence [Unknown]
  - Withdrawal syndrome [Unknown]
  - Dizziness [Unknown]
  - Fatigue [Unknown]
  - Product use issue [Unknown]
  - Syncope [Unknown]
  - Insomnia [Unknown]
  - Neurotransmitter level altered [Unknown]
